FAERS Safety Report 11790430 (Version 2)
Quarter: 2016Q1

REPORT INFORMATION
  Report Type: Spontaneous
  Country: JP (occurrence: JP)
  Receive Date: 20151201
  Receipt Date: 20160125
  Transmission Date: 20160525
  Serious: Yes (Other)
  Sender: FDA-Public Use
  Company Number: JP-TEVA-614715ISR

PATIENT
  Age: 53 Year
  Sex: Female

DRUGS (2)
  1. CISPLATIN. [Suspect]
     Active Substance: CISPLATIN
     Indication: CHEMOTHERAPY
     Dosage: 70 MG/M2, UNK (DAY 1) EVERY 4 WEEKS
  2. FLUOROURACIL. [Suspect]
     Active Substance: FLUOROURACIL
     Indication: CHEMOTHERAPY
     Dosage: 700 MG/M2, UNK (DAY 1-4) EVERY 4 WEEKS

REACTIONS (2)
  - Oesophageal stenosis [Recovered/Resolved]
  - Oesophageal haemorrhage [Recovered/Resolved]
